FAERS Safety Report 9328034 (Version 1)
Quarter: 2013Q2

REPORT INFORMATION
  Report Type: Spontaneous
  Country: US (occurrence: US)
  Receive Date: 20130604
  Receipt Date: 20130604
  Transmission Date: 20140414
  Serious: No
  Sender: FDA-Public Use
  Company Number: US-SANOFI-AVENTIS-2012SA030805

PATIENT
  Sex: Male

DRUGS (4)
  1. LANTUS [Suspect]
     Route: 058
  2. LANTUS [Suspect]
     Dosage: DOSE INCREASED
     Route: 058
  3. NOVOLOG [Suspect]
     Route: 065
  4. NOVOLOG [Suspect]
     Dosage: DOSE INCREASED
     Route: 065

REACTIONS (2)
  - Streptococcal infection [Unknown]
  - Blood glucose increased [Unknown]
